FAERS Safety Report 21286770 (Version 1)
Quarter: 2022Q3

REPORT INFORMATION
  Report Type: Spontaneous
  Country: US (occurrence: None)
  Receive Date: 20220902
  Receipt Date: 20220902
  Transmission Date: 20221027
  Serious: No
  Sender: FDA-Public Use
  Company Number: None

PATIENT

DRUGS (1)
  1. ERGOCALCIFEROL [Suspect]
     Active Substance: ERGOCALCIFEROL
     Dosage: OTHER STRENGTH : 50000 UNIT;?

REACTIONS (5)
  - Transcription medication error [None]
  - Product administration error [None]
  - Inappropriate schedule of product administration [None]
  - Circumstance or information capable of leading to medication error [None]
  - Overdose [None]
